FAERS Safety Report 6237441-6 (Version None)
Quarter: 2009Q2

REPORT INFORMATION
  Report Type: 
  Country: None (occurrence: None)
  Receive Date: 20090619
  Receipt Date: 20090609
  Transmission Date: 20091009
  Serious: Yes (Other)
  Sender: FDA-Public Use
  Company Number: US-ELI_LILLY_AND_COMPANY-US200906002361

PATIENT
  Sex: Male

DRUGS (12)
  1. BYETTA [Suspect]
     Indication: TYPE 2 DIABETES MELLITUS
     Dosage: 5 UG, 2/D
     Route: 058
     Dates: start: 20090401, end: 20090501
  2. BYETTA [Suspect]
     Dosage: 10 UG, 2/D
     Route: 058
     Dates: start: 20090501
  3. SIMVASTATIN [Concomitant]
     Dosage: 10 MG, DAILY (1/D)
     Route: 048
  4. GABAPENTIN [Concomitant]
     Dosage: 600 MG, EACH MORNING
  5. GABAPENTIN [Concomitant]
     Dosage: 1200 MG, DAILY (1/D)
  6. GABAPENTIN [Concomitant]
     Dosage: 1200 MG, EACH EVENING
  7. ASPIRIN [Concomitant]
     Dosage: 81 MG, DAILY (1/D)
     Route: 048
  8. VERAPAMIL [Concomitant]
     Dosage: UNK, 2/D
     Route: 048
  9. FLUOXETINE HCL [Concomitant]
     Dosage: 20 MG, DAILY (1/D)
     Route: 048
  10. LISINOPRIL [Concomitant]
     Dosage: 5 MG, DAILY (1/D)
     Route: 048
  11. GLIPIZIDE [Concomitant]
     Dosage: UNK, 2/D
     Route: 048
  12. ACTOS [Concomitant]
     Dosage: 45 MG, DAILY (1/D)
     Route: 048

REACTIONS (10)
  - ASTHENIA [None]
  - BACK INJURY [None]
  - BLOOD GLUCOSE INCREASED [None]
  - BLOOD PRESSURE DECREASED [None]
  - CONTUSION [None]
  - DISCOMFORT [None]
  - DIZZINESS [None]
  - FALL [None]
  - SKIN LACERATION [None]
  - SYNCOPE [None]
